FAERS Safety Report 5227150-4 (Version None)
Quarter: 2007Q1

REPORT INFORMATION
  Report Type: 
  Country: None (occurrence: None)
  Receive Date: 20070202
  Receipt Date: 20070123
  Transmission Date: 20070707
  Serious: Yes (Other)
  Sender: FDA-Public Use
  Company Number: CN-BRISTOL-MYERS SQUIBB COMPANY-13657903

PATIENT

DRUGS (1)
  1. PRAVACHOL [Suspect]
     Indication: HYPERTENSION
     Route: 048

REACTIONS (2)
  - HYPERKALAEMIA [None]
  - OPHTHALMOPLEGIA [None]
